FAERS Safety Report 16363995 (Version 1)
Quarter: 2019Q2

REPORT INFORMATION
  Report Type: Spontaneous
  Country: CA (occurrence: CA)
  Receive Date: 20190528
  Receipt Date: 20190528
  Transmission Date: 20190711
  Serious: Yes (Disabling)
  Sender: FDA-Public Use
  Company Number: CA-PFIZER INC-2019220551

PATIENT
  Age: 39 Year
  Sex: Female
  Weight: 77 kg

DRUGS (2)
  1. LYRICA [Suspect]
     Active Substance: PREGABALIN
     Dosage: 50 MG, 1X/DAY
     Route: 048
  2. VIMOVO [Suspect]
     Active Substance: ESOMEPRAZOLE MAGNESIUM\NAPROXEN
     Indication: GASTRIC DISORDER
     Dosage: 500 MG, 1X/DAY
     Route: 048

REACTIONS (5)
  - Confusional state [Recovered/Resolved]
  - Increased bronchial secretion [Recovered/Resolved]
  - Dizziness [Recovered/Resolved]
  - Rhinorrhoea [Recovered/Resolved]
  - Speech disorder [Recovered/Resolved]
